FAERS Safety Report 15243330 (Version 2)
Quarter: 2018Q3

REPORT INFORMATION
  Report Type: Spontaneous
  Country: US (occurrence: AT)
  Receive Date: 20180806
  Receipt Date: 20180829
  Transmission Date: 20181010
  Serious: Yes (Hospitalization, Other)
  Sender: FDA-Public Use
  Company Number: US-SUNOVION-2018SUN003057

PATIENT

DRUGS (1)
  1. INDACATEROL AND GLYCOPYRROLATE [Suspect]
     Active Substance: GLYCOPYRROLATE\INDACATEROL MALEATE
     Indication: CHRONIC OBSTRUCTIVE PULMONARY DISEASE
     Dosage: 1 DF, QD
     Route: 055
     Dates: start: 20160303

REACTIONS (17)
  - Contusion [Unknown]
  - Weight increased [Unknown]
  - Oedema peripheral [Unknown]
  - Anamnestic reaction [Unknown]
  - Cardiovascular disorder [Unknown]
  - Disease progression [Unknown]
  - Chest discomfort [Unknown]
  - Coronary artery disease [Recovering/Resolving]
  - Pulmonary function test decreased [Recovering/Resolving]
  - Oedema [Unknown]
  - Renal failure [Not Recovered/Not Resolved]
  - Cough [Recovering/Resolving]
  - Obesity [Unknown]
  - Dyspnoea exertional [Recovering/Resolving]
  - Nephrogenic anaemia [Recovering/Resolving]
  - Chronic obstructive pulmonary disease [Unknown]
  - Dyspnoea [Unknown]

NARRATIVE: CASE EVENT DATE: 20160303
